FAERS Safety Report 19034167 (Version 2)
Quarter: 2021Q3

REPORT INFORMATION
  Report Type: Report from Study
  Country: BR (occurrence: BR)
  Receive Date: 20210319
  Receipt Date: 20210818
  Transmission Date: 20211014
  Serious: Yes (Hospitalization, Other)
  Sender: FDA-Public Use
  Company Number: BR-BAXALTA-2016BLT006491AA

PATIENT
  Age: 46 Year
  Sex: Male
  Weight: 73 kg

DRUGS (6)
  1. FACTOR VIII INHIBITOR BYPASSING FRACTION; BAXJECT II NF [Suspect]
     Active Substance: ANTI-INHIBITOR COAGULANT COMPLEX
     Indication: FACTOR VIII DEFICIENCY
     Dosage: 6000 IU, 1X A DAY, TREATMENT FOR BLEED
     Route: 050
     Dates: start: 2005
  2. FACTOR VIII INHIBITOR BYPASSING FRACTION; BAXJECT II NF [Suspect]
     Active Substance: ANTI-INHIBITOR COAGULANT COMPLEX
     Dosage: 5500 INTERNATIONAL UNIT, 3/WEEK
     Route: 050
  3. FACTOR VIII INHIBITOR BYPASSING FRACTION; BAXJECT II NF [Suspect]
     Active Substance: ANTI-INHIBITOR COAGULANT COMPLEX
     Dosage: 4500 INTERNATIONAL UNIT, 3/WEEK
     Route: 042
  4. HEMO?8R [Suspect]
     Active Substance: ANTIHEMOPHILIC FACTOR, HUMAN RECOMBINANT
     Indication: PRODUCT USED FOR UNKNOWN INDICATION
     Dosage: UNK
     Route: 065
     Dates: start: 2005
  5. FACTOR VIII INHIBITOR BYPASSING FRACTION; BAXJECT II NF [Suspect]
     Active Substance: ANTI-INHIBITOR COAGULANT COMPLEX
     Indication: PROPHYLAXIS
     Dosage: 6000 IU, UNK
     Route: 065
     Dates: start: 2005
  6. FACTOR VIII INHIBITOR BYPASSING FRACTION; BAXJECT II NF [Suspect]
     Active Substance: ANTI-INHIBITOR COAGULANT COMPLEX
     Dosage: 6000 IU, 1X A DAY, TREATMENT FOR BLEED
     Route: 065
     Dates: start: 20160831, end: 20160902

REACTIONS (8)
  - Eating disorder [Unknown]
  - Dysstasia [Unknown]
  - Haemarthrosis [Unknown]
  - Haemorrhage [Unknown]
  - Joint swelling [Unknown]
  - Contusion [Unknown]
  - Weight decreased [Unknown]
  - Arthralgia [Unknown]

NARRATIVE: CASE EVENT DATE: 2010
